FAERS Safety Report 20510557 (Version 2)
Quarter: 2022Q2

REPORT INFORMATION
  Report Type: Report from Study
  Country: US (occurrence: US)
  Receive Date: 20220224
  Receipt Date: 20220425
  Transmission Date: 20220720
  Serious: Yes (Other)
  Sender: FDA-Public Use
  Company Number: US-SANOFI-00794515

PATIENT
  Age: 87 Year
  Sex: Female

DRUGS (3)
  1. DUPILUMAB [Suspect]
     Active Substance: DUPILUMAB
     Indication: Dermatitis atopic
     Dosage: 600 MG, 1X
     Route: 058
     Dates: start: 20210830, end: 20210830
  2. DUPILUMAB [Suspect]
     Active Substance: DUPILUMAB
     Dosage: 300 MG, QOW
     Route: 058
     Dates: start: 20211027
  3. ALEVE [Concomitant]
     Active Substance: NAPROXEN SODIUM

REACTIONS (11)
  - Nasal cavity cancer [Unknown]
  - Fatigue [Not Recovered/Not Resolved]
  - Contusion [Recovering/Resolving]
  - Rash macular [Recovering/Resolving]
  - Skin lesion [Unknown]
  - Melanocytic naevus [Unknown]
  - Infection [Unknown]
  - Arthralgia [Unknown]
  - Plastic surgery [Unknown]
  - Rash [Unknown]
  - Therapeutic response decreased [Unknown]

NARRATIVE: CASE EVENT DATE: 20220128
